FAERS Safety Report 8583094-1 (Version None)
Quarter: 2012Q2

REPORT INFORMATION
  Report Type: 
  Country: None (occurrence: None)
  Receive Date: 20120423
  Receipt Date: 20091006
  Transmission Date: 20120825
  Serious: Yes (Hospitalization, Other)
  Sender: FDA-Public Use
  Company Number: PHEH2009US13138

PATIENT
  Sex: Male

DRUGS (1)
  1. EXJADE [Suspect]
     Dosage: 125 DAILY, ORAL
     Route: 048
     Dates: start: 20070928

REACTIONS (1)
  - SICKLE CELL ANAEMIA WITH CRISIS [None]
